FAERS Safety Report 13176880 (Version 3)
Quarter: 2017Q2

REPORT INFORMATION
  Report Type: Spontaneous
  Country: US (occurrence: US)
  Receive Date: 20170201
  Receipt Date: 20170522
  Transmission Date: 20170830
  Serious: No
  Sender: FDA-Public Use
  Company Number: US-PFIZER INC-2017041540

PATIENT
  Age: 12 Year
  Sex: Female

DRUGS (2)
  1. FENTANYL CITRATE. [Suspect]
     Active Substance: FENTANYL CITRATE
     Dosage: 1 PATCH (12 MCG TOTAL) TO THE SKIN EVERY 72 HOURS
     Route: 062
     Dates: start: 20161201, end: 20170215
  2. FENTANYL CITRATE. [Suspect]
     Active Substance: FENTANYL CITRATE
     Indication: PAIN
     Dosage: UNK, AS NEEDED
     Route: 062
     Dates: start: 201607, end: 201702

REACTIONS (1)
  - Drug ineffective [Unknown]
